FAERS Safety Report 25184818 (Version 2)
Quarter: 2025Q2

REPORT INFORMATION
  Report Type: Report from Study
  Country: US (occurrence: US)
  Receive Date: 20250410
  Receipt Date: 20250523
  Transmission Date: 20250717
  Serious: Yes (Hospitalization)
  Sender: DR REDDYS
  Company Number: US-DRL-USA-USA/2025/04/004895

PATIENT
  Age: 3 Year
  Sex: Male
  Weight: 17.2 kg

DRUGS (1)
  1. JAVYGTOR [Suspect]
     Active Substance: SAPROPTERIN DIHYDROCHLORIDE
     Indication: Phenylketonuria
     Route: 048
     Dates: start: 20241212, end: 20250316

REACTIONS (7)
  - Rhinovirus infection [Unknown]
  - Rhinorrhoea [Unknown]
  - Cough [Unknown]
  - Behaviour disorder [Unknown]
  - Product use issue [Unknown]
  - Overdose [Unknown]
  - Product prescribing error [Unknown]

NARRATIVE: CASE EVENT DATE: 20250316
